FAERS Safety Report 7288654-6 (Version None)
Quarter: 2011Q1

REPORT INFORMATION
  Report Type: 
  Country: None (occurrence: None)
  Receive Date: 20110211
  Receipt Date: 20110201
  Transmission Date: 20110831
  Serious: No
  Sender: FDA-Public Use
  Company Number: B0697855A

PATIENT

DRUGS (1)
  1. RELENZA [Suspect]
     Dosage: 2IUAX PER DAY
     Route: 045

REACTIONS (1)
  - INCORRECT ROUTE OF DRUG ADMINISTRATION [None]
